FAERS Safety Report 17312784 (Version 1)
Quarter: 2020Q1

REPORT INFORMATION
  Report Type: Spontaneous
  Country: BR (occurrence: BR)
  Receive Date: 20200123
  Receipt Date: 20200123
  Transmission Date: 20200409
  Serious: Yes (Other)
  Sender: FDA-Public Use
  Company Number: BR-ABBVIE-20K-020-3241465-00

PATIENT
  Sex: Female
  Weight: 59 kg

DRUGS (1)
  1. LUPRON [Suspect]
     Active Substance: LEUPROLIDE ACETATE
     Indication: ENDOMETRIOSIS
     Route: 065
     Dates: start: 1999

REACTIONS (6)
  - Irritable bowel syndrome [Recovering/Resolving]
  - Insomnia [Recovered/Resolved]
  - Live birth [Unknown]
  - Nephrolithiasis [Unknown]
  - Endometriosis [Recovered/Resolved]
  - Maternal exposure during pregnancy [Unknown]

NARRATIVE: CASE EVENT DATE: 2017
